FAERS Safety Report 8468906-4 (Version None)
Quarter: 2012Q2

REPORT INFORMATION
  Report Type: 
  Country: None (occurrence: None)
  Receive Date: 20120620
  Receipt Date: 20120609
  Transmission Date: 20120825
  Serious: Yes (Hospitalization)
  Sender: FDA-Public Use
  Company Number: 2012AP001799

PATIENT
  Age: 86 Year
  Sex: Female

DRUGS (3)
  1. HYDRALAZINE HYDROCHLORIDE [Suspect]
     Indication: HYPERTENSION
     Dosage: 100 MG;TID
  2. CARBAMAZEPINE [Suspect]
     Indication: OFF LABEL USE
     Dosage: 100 MG;QD
  3. CARBAMAZEPINE [Suspect]
     Indication: BIPOLAR DISORDER
     Dosage: 100 MG;QD

REACTIONS (17)
  - INSOMNIA [None]
  - PERIORBITAL OEDEMA [None]
  - OFF LABEL USE [None]
  - BLISTER [None]
  - FATIGUE [None]
  - ANTINUCLEAR ANTIBODY POSITIVE [None]
  - CONJUNCTIVITIS [None]
  - ERYTHEMA [None]
  - ORAL MUCOSA EROSION [None]
  - ACUTE FEBRILE NEUTROPHILIC DERMATOSIS [None]
  - ANXIETY [None]
  - PYREXIA [None]
  - SKIN LESION [None]
  - HAEMOGLOBIN DECREASED [None]
  - MALAISE [None]
  - RENAL FAILURE ACUTE [None]
  - ABSCESS [None]
